FAERS Safety Report 11133501 (Version 6)
Quarter: 2015Q3

REPORT INFORMATION
  Report Type: Report from Study
  Country: CA (occurrence: CA)
  Receive Date: 20150522
  Receipt Date: 20150710
  Transmission Date: 20151125
  Serious: Yes (Hospitalization, Other)
  Sender: FDA-Public Use
  Company Number: PHHY2015CA037219

PATIENT
  Age: 84 Year
  Sex: Female

DRUGS (3)
  1. SANDOSTATIN LAR DEPOT [Suspect]
     Active Substance: OCTREOTIDE ACETATE
     Indication: HAEMORRHAGE
     Dosage: 20 MG, QMO
     Route: 030
     Dates: start: 20150324
  2. SANDOSTATIN [Suspect]
     Active Substance: OCTREOTIDE ACETATE
     Indication: HAEMORRHAGE
     Dosage: TWICE DAILY
     Route: 058
     Dates: start: 20150309, end: 20150320
  3. SANDOSTATIN LAR DEPOT [Suspect]
     Active Substance: OCTREOTIDE ACETATE
     Dosage: 10 MG, QMO
     Route: 030
     Dates: end: 20150522

REACTIONS (14)
  - Blood pressure systolic increased [Unknown]
  - Malaise [Unknown]
  - Gastritis [Unknown]
  - Off label use [Unknown]
  - Small intestine carcinoma [Unknown]
  - Dysphagia [Unknown]
  - Epigastric discomfort [Unknown]
  - Pyrexia [Recovered/Resolved]
  - Cough [Recovered/Resolved]
  - Constipation [Unknown]
  - Electrolyte imbalance [Unknown]
  - Haemoglobin decreased [Unknown]
  - Blood pressure diastolic decreased [Unknown]
  - Secretion discharge [Recovered/Resolved]

NARRATIVE: CASE EVENT DATE: 2015
